FAERS Safety Report 8018695-2 (Version None)
Quarter: 2012Q1

REPORT INFORMATION
  Report Type: 
  Country: None (occurrence: None)
  Receive Date: 20120103
  Receipt Date: 20120103
  Transmission Date: 20120608
  Serious: Yes (Other)
  Sender: FDA-Public Use
  Company Number: None

PATIENT
  Sex: Male
  Weight: 145 kg

DRUGS (1)
  1. RIVAROXABAN [Suspect]
     Dosage: 10 MG
     Route: 048
     Dates: start: 20111224, end: 20111231

REACTIONS (1)
  - DEEP VEIN THROMBOSIS [None]
